FAERS Safety Report 4549302-9 (Version None)
Quarter: 2005Q1

REPORT INFORMATION
  Report Type: 
  Country: None (occurrence: None)
  Receive Date: 20041230
  Receipt Date: 20040615
  Transmission Date: 20050727
  Serious: Yes (Other)
  Sender: FDA-Public Use
  Company Number: 04-06-0852

PATIENT
  Age: 49 Year
  Sex: Male
  Weight: 81.6475 kg

DRUGS (5)
  1. CLOZAPINE [Suspect]
     Dosage: 750MG QD ORAL
     Route: 048
     Dates: start: 20021201, end: 20040601
  2. PEGASYS [Suspect]
     Indication: HEPATITIS C
     Dosage: 180MCG QW INTRAMUSCULAR
     Route: 030
     Dates: start: 20040416
  3. RIBAVIRIN [Suspect]
     Indication: HEPATITIS C
     Dosage: SEE IMAGE
     Route: 048
     Dates: start: 20040416
  4. RIBAVIRIN [Suspect]
     Indication: HEPATITIS C
     Dosage: SEE IMAGE
     Route: 048
     Dates: start: 20040416
  5. ABILIFY [Concomitant]

REACTIONS (1)
  - NEUTROPENIA [None]
